FAERS Safety Report 7770893-9 (Version None)
Quarter: 2011Q3

REPORT INFORMATION
  Report Type: 
  Country: None (occurrence: None)
  Receive Date: 20110922
  Receipt Date: 20110720
  Transmission Date: 20111222
  Serious: Yes (Other)
  Sender: FDA-Public Use
  Company Number: US-ASTRAZENECA-2008UW08900

PATIENT
  Age: 15868 Day
  Sex: Male
  Weight: 93 kg

DRUGS (8)
  1. TRAZODONE HYDROCHLORIDE [Concomitant]
  2. WELLBUTRIN [Concomitant]
  3. ANAFRANIL [Concomitant]
  4. PROTONIX [Concomitant]
     Route: 048
     Dates: start: 20061123
  5. SEROQUEL [Suspect]
     Indication: BIPOLAR DISORDER
     Dosage: 100-600 MG
     Route: 048
     Dates: start: 20060802, end: 20061211
  6. SEROQUEL [Suspect]
     Route: 048
     Dates: start: 20061123
  7. ZOLOFT [Concomitant]
     Dosage: 50-100 MG
     Route: 048
     Dates: start: 20061123
  8. LEXAPRO [Concomitant]

REACTIONS (2)
  - DIABETES MELLITUS [None]
  - DIABETIC KETOACIDOSIS [None]
